FAERS Safety Report 18884764 (Version 1)
Quarter: 2021Q1

REPORT INFORMATION
  Report Type: Report from Study
  Country: US (occurrence: US)
  Receive Date: 20210212
  Receipt Date: 20210212
  Transmission Date: 20210420
  Serious: Yes (Other)
  Sender: FDA-Public Use
  Company Number: US-EMD SERONO-9196387

PATIENT
  Sex: Male

DRUGS (1)
  1. REBIF [Suspect]
     Active Substance: INTERFERON BETA-1A
     Indication: PRODUCT USED FOR UNKNOWN INDICATION
     Dosage: MANUAL
     Route: 058
     Dates: start: 20140930

REACTIONS (5)
  - Influenza like illness [Unknown]
  - Needle fatigue [Unknown]
  - Prostate cancer [Unknown]
  - Red blood cell count decreased [Unknown]
  - Treatment noncompliance [Unknown]
